FAERS Safety Report 15709917 (Version 1)
Quarter: 2018Q4

REPORT INFORMATION
  Report Type: Spontaneous
  Country: US (occurrence: US)
  Receive Date: 20181211
  Receipt Date: 20181211
  Transmission Date: 20190205
  Serious: Yes (Other)
  Sender: FDA-Public Use
  Company Number: US-JUBILANT PHARMA LTD-2018US001279

PATIENT
  Age: 57 Year
  Sex: Female

DRUGS (30)
  1. STANDARDIZED GRASS POLLEN, BERMUDA GRASS [Suspect]
     Active Substance: CYNODON DACTYLON POLLEN
  2. POLLENS - TREES, ALDER, RED ALNUS RUBRA [Suspect]
     Active Substance: ALNUS RUBRA POLLEN
  3. POLLENS - TREES, BOXELDER/MAPLE MIX [Suspect]
     Active Substance: ACER NEGUNDO POLLEN\ACER RUBRUM POLLEN\ACER SACCHARUM POLLEN
  4. POLLENS - WEEDS, MARSHELDER/POVERTY MIX [Suspect]
     Active Substance: CYCLACHAENA XANTHIFOLIA POLLEN\IVA ANNUA POLLEN\IVA AXILLARIS POLLEN
  5. POLLENS - WEEDS AND GARDEN PLANTS, PLANTAIN, ENGLISH PLANTAGO LANCEOLATA [Suspect]
     Active Substance: PLANTAGO LANCEOLATA POLLEN
  6. STANDARDIZED SHORT RAGWEED POLLEN [Suspect]
     Active Substance: AMBROSIA ARTEMISIIFOLIA POLLEN
  7. POLLENS - WEEDS AND GARDEN PLANTS, SAGEBRUSH, MUGWORT ARTEMISIA VULGARIS [Suspect]
     Active Substance: ARTEMISIA VULGARIS POLLEN
  8. POLLENS - GRASSES, BAHIA GRASS PASPALUM NOTATUM [Suspect]
     Active Substance: PASPALUM NOTATUM POLLEN
  9. POLLENS - WEEDS AND GARDEN PLANTS, LAMBS QUARTERS CHENOPODIUM ALBUM [Suspect]
     Active Substance: CHENOPODIUM ALBUM POLLEN
  10. POLLENS - WEEDS, DOCK/SORREL MIX [Suspect]
     Active Substance: RUMEX ACETOSELLA POLLEN\RUMEX CRISPUS POLLEN
  11. POLLENS - TREES, ELM, AMERICAN ULMUS AMERICANA [Suspect]
     Active Substance: ULMUS AMERICANA POLLEN
  12. STANDARDIZED CAT HAIR [Suspect]
     Active Substance: FELIS CATUS HAIR
  13. STANDARDIZED MITE, DERMATOPHAGOIDES PTERONYSSINUS, BULK, 10000 AU PER ML [Suspect]
     Active Substance: DERMATOPHAGOIDES PTERONYSSINUS
  14. POLLENS - WEEDS AND GARDEN PLANTS, NETTLE URTICA DIOICA [Suspect]
     Active Substance: URTICA DIOICA POLLEN
  15. POLLENS - WEEDS AND GARDEN PLANTS, RUSSIAN THISTLE SALSOLA KALI [Suspect]
     Active Substance: SALSOLA KALI POLLEN
  16. POLLENS - TREES, WILLOW, BLACK SALIX NIGRA [Suspect]
     Active Substance: SALIX NIGRA POLLEN
  17. POLLENS - WEEDS AND GARDEN PLANTS, COCKLEBUR XANTHIUM STRUMARIUM [Suspect]
     Active Substance: XANTHIUM STRUMARIUM POLLEN
  18. POLLENS - TREES, COTTONWOOD, COMMON POPULUS DELTOIDES [Suspect]
     Active Substance: POPULUS DELTOIDES POLLEN
  19. POLLENS - TREES, PECAN CARYA CARYA ILLINOENSIS [Suspect]
     Active Substance: CARYA ILLINOINENSIS POLLEN
  20. POLLENS - TREES, SYCAMORE, AMERICAN (EASTERN) PLATANUS OCCIDENTALLIS [Suspect]
     Active Substance: PLATANUS OCCIDENTALIS POLLEN
     Indication: PRODUCT USED FOR UNKNOWN INDICATION
  21. POLLENS - TREES, WALNUT, BLACK JUGLANS NIGRA [Suspect]
     Active Substance: JUGLANS NIGRA POLLEN
  22. POLLENS - WEEDS AND GARDEN PLANTS, DOG FENNEL, EASTERN EUPATORIUM CAPILLIFOLIUM [Suspect]
     Active Substance: EUPATORIUM CAPILLIFOLIUM POLLEN
  23. POLLENS - TREES, ASH, WHITE FRAXINUS AMERICANA [Suspect]
     Active Substance: FRAXINUS AMERICANA POLLEN
  24. POLLENS - TREES, BIRCH MIX [Suspect]
     Active Substance: BETULA NIGRA POLLEN\BETULA PAPYRIFERA POLLEN\BETULA PENDULA POLLEN
  25. POLLENS - TREES, OAK MIX [Suspect]
     Active Substance: QUERCUS ALBA POLLEN\QUERCUS RUBRA POLLEN\QUERCUS VIRGINIANA POLLEN
  26. POLLENS - WEEDS, CARELESS WEED AMARANTHUS PALMERI [Suspect]
     Active Substance: AMARANTHUS PALMERI POLLEN
  27. POLLENS - TREES, GUM, SWEET LIQUIDAMBAR STYRACIFLUA [Suspect]
     Active Substance: LIQUIDAMBAR STYRACIFLUA POLLEN
  28. STANDARDIZED MITE, DERMATOPHAGOIDES PTERONYSSINUS, BULK, 10000 AU PER ML [Suspect]
     Active Substance: DERMATOPHAGOIDES PTERONYSSINUS
  29. POLLENS - GRASSES, JOHNSON GRASS SORGHUM HALEPENSE [Suspect]
     Active Substance: SORGHUM HALEPENSE POLLEN
  30. POLLENS - TREES, MULBERRY MIX [Suspect]
     Active Substance: MORUS ALBA POLLEN\MORUS RUBRA POLLEN

REACTIONS (5)
  - Wheezing [None]
  - Anaphylactic reaction [None]
  - Throat tightness [None]
  - Dyspnoea [Recovered/Resolved]
  - Swelling [None]

NARRATIVE: CASE EVENT DATE: 20181119
